FAERS Safety Report 13797810 (Version 1)
Quarter: 2017Q3

REPORT INFORMATION
  Report Type: Spontaneous
  Country: JP (occurrence: JP)
  Receive Date: 20170727
  Receipt Date: 20170727
  Transmission Date: 20171127
  Serious: Yes (Other)
  Sender: FDA-Public Use
  Company Number: JP-MACLEODS PHARMACEUTICALS US LTD-MAC2017005468

PATIENT

DRUGS (2)
  1. ACARBOSE. [Suspect]
     Active Substance: ACARBOSE
     Indication: INSULIN RESISTANCE SYNDROME
     Dosage: UNK
     Route: 065
  2. METFORMIN HYDROCHLORIDE. [Suspect]
     Active Substance: METFORMIN HYDROCHLORIDE
     Indication: INSULIN RESISTANCE SYNDROME
     Dosage: UNK
     Route: 065

REACTIONS (1)
  - Condition aggravated [Recovering/Resolving]
